FAERS Safety Report 5851077-8 (Version None)
Quarter: 2008Q3

REPORT INFORMATION
  Report Type: 
  Country: None (occurrence: None)
  Receive Date: 20080818
  Receipt Date: 20080731
  Transmission Date: 20090109
  Serious: Yes (Other)
  Sender: FDA-Public Use
  Company Number: 8035711

PATIENT
  Age: 47 Year
  Sex: Male

DRUGS (4)
  1. PREDNISOLONE [Suspect]
     Indication: NECROTISING RETINITIS
     Dosage: 50 MG /D, PO
     Route: 048
     Dates: start: 20020801
  2. PREDNISOLONE [Suspect]
     Indication: NECROTISING RETINITIS
     Dosage: 20 MG /D; PO
  3. PREDNISOLONE [Suspect]
     Indication: NECROTISING RETINITIS
     Dosage: 5 MG,
  4. ACYCLOVIR [Suspect]
     Indication: NECROTISING RETINITIS
     Dosage: 500 MG 3/D; IV
     Route: 042

REACTIONS (1)
  - CHORIORETINOPATHY [None]
